FAERS Safety Report 4410354-8 (Version None)
Quarter: 2004Q2

REPORT INFORMATION
  Report Type: 
  Country: None (occurrence: None)
  Receive Date: 20040618
  Receipt Date: 20040427
  Transmission Date: 20050107
  Serious: No
  Sender: FDA-Public Use
  Company Number: US-JNJFOC-20040406325

PATIENT
  Age: 20 Year
  Sex: Female
  Weight: 55.7924 kg

DRUGS (1)
  1. ORTHO EVRA [Suspect]

REACTIONS (1)
  - MENSTRUAL DISORDER [None]
